FAERS Safety Report 5390976-0 (Version None)
Quarter: 2007Q3

REPORT INFORMATION
  Report Type: 
  Country: None (occurrence: None)
  Receive Date: 20070716
  Receipt Date: 20070309
  Transmission Date: 20080115
  Serious: Yes (Other)
  Sender: FDA-Public Use
  Company Number: MPS1-10663

PATIENT
  Age: 14 Year
  Sex: Female
  Weight: 30 kg

DRUGS (1)
  1. ALDURAZYME [Suspect]
     Indication: MUCOPOLYSACCHARIDOSIS I
     Dosage: 17.4 MG QWK IV
     Route: 042
     Dates: start: 20050406

REACTIONS (2)
  - CATHETER RELATED COMPLICATION [None]
  - CATHETER SITE HAEMATOMA [None]
